FAERS Safety Report 7387702-2 (Version None)
Quarter: 2011Q1

REPORT INFORMATION
  Report Type: 
  Country: None (occurrence: None)
  Receive Date: 20110331
  Receipt Date: 20110323
  Transmission Date: 20110831
  Serious: Yes (Hospitalization)
  Sender: FDA-Public Use
  Company Number: US-BAXTER-2011BH004040

PATIENT
  Age: 6 Year
  Sex: Female

DRUGS (3)
  1. GAMMAGARD LIQUID [Suspect]
     Route: 042
     Dates: start: 20110101, end: 20110101
  2. IMMUNOGLOBULIN HUMAN NORMAL [Concomitant]
     Indication: HYPOGAMMAGLOBULINAEMIA
     Route: 042
  3. GAMMAGARD LIQUID [Suspect]
     Indication: HYPOGAMMAGLOBULINAEMIA
     Route: 042
     Dates: start: 20100901, end: 20100901

REACTIONS (1)
  - URTICARIA [None]
